FAERS Safety Report 9725042 (Version 3)
Quarter: 2014Q1

REPORT INFORMATION
  Report Type: Report from Study
  Country: DE (occurrence: DE)
  Receive Date: 20131203
  Receipt Date: 20140206
  Transmission Date: 20141002
  Serious: Yes (Hospitalization, Other)
  Sender: FDA-Public Use
  Company Number: DE-BIOGENIDEC-2013BI114592

PATIENT
  Age: 33 Year
  Sex: Female
  Weight: 52 kg

DRUGS (6)
  1. TYSABRI [Suspect]
     Indication: MULTIPLE SCLEROSIS
     Route: 042
     Dates: start: 20081028, end: 20131025
  2. TYSABRI [Suspect]
     Indication: MULTIPLE SCLEROSIS
     Route: 042
     Dates: start: 20140127
  3. CLINDAMYCIN [Concomitant]
     Dates: start: 20130812, end: 20130826
  4. CLINDAMYCIN [Concomitant]
     Dates: start: 20130909, end: 20130916
  5. CLINDAMYCIN [Concomitant]
     Dates: start: 20131013, end: 20131030
  6. IBUPROFEN [Concomitant]
     Dates: start: 20130812, end: 20131030

REACTIONS (2)
  - Abortion missed [Recovered/Resolved]
  - Pregnancy [Unknown]
